FAERS Safety Report 8172458-6 (Version None)
Quarter: 2012Q1

REPORT INFORMATION
  Report Type: 
  Country: None (occurrence: None)
  Receive Date: 20120227
  Receipt Date: 20120227
  Transmission Date: 20120608
  Serious: Yes (Hospitalization)
  Sender: FDA-Public Use
  Company Number: None

PATIENT
  Sex: Male
  Weight: 11.3 kg

DRUGS (2)
  1. CYCLOPHOSPHAMIDE [Suspect]
     Dosage: 750 MG
  2. TOPOTECAN [Suspect]
     Dosage: 3 MG

REACTIONS (7)
  - PULMONARY OEDEMA [None]
  - INTERNATIONAL NORMALISED RATIO INCREASED [None]
  - THROMBOTIC MICROANGIOPATHY [None]
  - RESPIRATORY DISTRESS [None]
  - RENAL FAILURE [None]
  - HYPERTENSION [None]
  - RENAL HAEMATOMA [None]
